FAERS Safety Report 8268771-4 (Version None)
Quarter: 2012Q2

REPORT INFORMATION
  Report Type: 
  Country: None (occurrence: None)
  Receive Date: 20120409
  Receipt Date: 20120409
  Transmission Date: 20120825
  Serious: No
  Sender: FDA-Public Use
  Company Number: None

PATIENT
  Sex: Female
  Weight: 70.306 kg

DRUGS (1)
  1. SINGULAIR [Suspect]
     Indication: ASTHMA
     Dosage: 1 PILL
     Route: 048
     Dates: start: 20120327, end: 20120404

REACTIONS (6)
  - PARAESTHESIA [None]
  - HYPOAESTHESIA [None]
  - HYPOAESTHESIA ORAL [None]
  - DISORIENTATION [None]
  - THINKING ABNORMAL [None]
  - MUSCULOSKELETAL DISORDER [None]
